FAERS Safety Report 15558647 (Version 3)
Quarter: 2018Q4

REPORT INFORMATION
  Report Type: Spontaneous
  Country: RU (occurrence: RU)
  Receive Date: 20181029
  Receipt Date: 20181130
  Transmission Date: 20190205
  Serious: Yes (Death, Other)
  Sender: FDA-Public Use
  Company Number: RU-ABBVIE-18S-251-2527030-00

PATIENT
  Age: 2 Year
  Sex: Female
  Weight: 6 kg

DRUGS (2)
  1. SEVORANE [Suspect]
     Active Substance: SEVOFLURANE
     Indication: OESOPHAGOGASTRODUODENOSCOPY
     Dosage: 0.7 MAC
     Route: 055
     Dates: start: 201809, end: 201809
  2. SEVORANE [Suspect]
     Active Substance: SEVOFLURANE
     Indication: GENERAL ANAESTHESIA
     Route: 055
     Dates: start: 2016, end: 2016

REACTIONS (5)
  - Febrile convulsion [Recovering/Resolving]
  - Vomiting [Recovering/Resolving]
  - Brain oedema [Not Recovered/Not Resolved]
  - Pulmonary oedema [Not Recovered/Not Resolved]
  - Cardiac arrest [Fatal]

NARRATIVE: CASE EVENT DATE: 201809
